FAERS Safety Report 11191223 (Version 3)
Quarter: 2018Q4

REPORT INFORMATION
  Report Type: Spontaneous
  Country: FR (occurrence: FR)
  Receive Date: 20150615
  Receipt Date: 20181127
  Transmission Date: 20190204
  Serious: Yes (Hospitalization, Other)
  Sender: FDA-Public Use
  Company Number: FR-TAKEDA-2015TUS007703

PATIENT
  Age: 45 Year
  Sex: Male
  Weight: 72 kg

DRUGS (1)
  1. ENTYVIO [Suspect]
     Active Substance: VEDOLIZUMAB
     Indication: COLITIS ULCERATIVE
     Dosage: UNK
     Route: 042
     Dates: start: 20150323, end: 20150401

REACTIONS (7)
  - Visual field defect [Not Recovered/Not Resolved]
  - Pruritus [Recovered/Resolved]
  - Papilloedema [Not Recovered/Not Resolved]
  - Optic neuritis [Not Recovered/Not Resolved]
  - Rash erythematous [Recovered/Resolved]
  - Dry eye [Recovered/Resolved]
  - Eosinophilia [Recovered/Resolved]

NARRATIVE: CASE EVENT DATE: 201504
